FAERS Safety Report 7577487-9 (Version None)
Quarter: 2011Q2

REPORT INFORMATION
  Report Type: 
  Country: None (occurrence: None)
  Receive Date: 20110628
  Receipt Date: 20110614
  Transmission Date: 20111010
  Serious: Yes (Other)
  Sender: FDA-Public Use
  Company Number: US-BAYER-2011-048761

PATIENT
  Age: 29 Year
  Sex: Female

DRUGS (3)
  1. MIRENA [Suspect]
     Dosage: 20 MCG/24HR, CONT (FOR 5 OR 6 MONTHS)
     Route: 015
     Dates: start: 20090429, end: 20110201
  2. MIRENA [Suspect]
     Indication: CONTRACEPTION
     Dosage: 20 MCG/24HR, CONT
     Route: 015
     Dates: start: 20050614, end: 20090417
  3. ALBUTEROL SULFATE AUTOHALER [Concomitant]

REACTIONS (18)
  - UTERINE PERFORATION [None]
  - OEDEMA PERIPHERAL [None]
  - ANXIETY [None]
  - WEIGHT INCREASED [None]
  - VAGINAL INFECTION [None]
  - PELVIC PAIN [None]
  - ASTHENIA [None]
  - VAGINAL HAEMORRHAGE [None]
  - DEPRESSED MOOD [None]
  - VAGINAL DISCHARGE [None]
  - MALAISE [None]
  - INSOMNIA [None]
  - ALOPECIA [None]
  - OVARIAN CYST [None]
  - BACK PAIN [None]
  - PRURITUS [None]
  - PROCEDURAL PAIN [None]
  - URINARY TRACT INFECTION [None]
